FAERS Safety Report 8818692 (Version 1)
Quarter: 2012Q4

REPORT INFORMATION
  Report Type: 
  Country: US (occurrence: US)
  Receive Date: 20121001
  Receipt Date: 20121001
  Transmission Date: 20130627
  Serious: Yes (Other)
  Sender: FDA-Public Use
  Company Number: US-ROCHE-1138376

PATIENT

DRUGS (2)
  1. VALCYTE [Suspect]
     Indication: PROPHYLAXIS AGAINST TRANSPLANT REJECTION
  2. ALEMTUZUMAB [Suspect]
     Indication: LUNG TRANSPLANT

REACTIONS (4)
  - Neutropenia [Unknown]
  - Toxicity to various agents [Unknown]
  - Gastrointestinal toxicity [Unknown]
  - Drug resistance [Unknown]
